FAERS Safety Report 6691629-9 (Version None)
Quarter: 2010Q2

REPORT INFORMATION
  Report Type: 
  Country: None (occurrence: None)
  Receive Date: 20100422
  Receipt Date: 20090731
  Transmission Date: 20101027
  Serious: No
  Sender: FDA-Public Use
  Company Number: US-ASTRAZENECA-2009SE06494

PATIENT
  Age: 79 Year
  Sex: Female
  Weight: 52.2 kg

DRUGS (5)
  1. TOPROL-XL [Suspect]
     Route: 048
     Dates: start: 20070101
  2. PLAVIX [Concomitant]
  3. LISINOPRIL [Concomitant]
  4. ZOCOR [Concomitant]
  5. CLONIDINE [Concomitant]

REACTIONS (2)
  - FAECAL VOLUME INCREASED [None]
  - WEIGHT DECREASED [None]
